FAERS Safety Report 18899049 (Version 13)
Quarter: 2023Q1

REPORT INFORMATION
  Report Type: Report from Study
  Country: US (occurrence: None)
  Receive Date: 20210216
  Receipt Date: 20230331
  Transmission Date: 20230418
  Serious: Yes (Death, Hospitalization)
  Sender: FDA-Public Use
  Company Number: US-ROCHE-2752114

PATIENT
  Age: 63 Year
  Sex: Female
  Weight: 75.9 kg

DRUGS (40)
  1. MOSUNETUZUMAB [Suspect]
     Active Substance: MOSUNETUZUMAB
     Indication: B-cell lymphoma
     Dosage: ON 28/DEC/2020 RECEIVED MOST RECENT DOSE (30 MG) OF MOSUNETUZUMAB PRIOR TO SERIOUS ADVERSE EVENT ONS
     Route: 042
     Dates: start: 20200713
  2. POLATUZUMAB VEDOTIN [Suspect]
     Active Substance: POLATUZUMAB VEDOTIN
     Indication: B-cell lymphoma
     Dosage: ON 26/OCT/2020 RECEIVED MOST RECENT DOSE OF POLATUZUMAB VEDOTIN PRIOR TO SERIOUS ADVERSE EVENT ONSET
     Route: 042
     Dates: start: 20200713
  3. ALBUTEROL\IPRATROPIUM [Concomitant]
     Active Substance: ALBUTEROL\IPRATROPIUM
     Route: 055
     Dates: start: 20210730, end: 20210730
  4. METOPROLOL [Concomitant]
     Active Substance: METOPROLOL
     Route: 048
     Dates: start: 2012
  5. METOPROLOL [Concomitant]
     Active Substance: METOPROLOL
     Route: 048
     Dates: start: 20201116
  6. VENLAFAXINE [Concomitant]
     Active Substance: VENLAFAXINE HYDROCHLORIDE
     Route: 048
     Dates: start: 201809
  7. CHOLECALCIFEROL [Concomitant]
     Active Substance: CHOLECALCIFEROL
     Route: 048
     Dates: start: 2018
  8. ATORVASTATIN [Concomitant]
     Active Substance: ATORVASTATIN
     Route: 048
     Dates: start: 2013
  9. EZETIMIBE [Concomitant]
     Active Substance: EZETIMIBE
     Route: 048
     Dates: start: 2013
  10. FERROUS SULFATE [Concomitant]
     Active Substance: FERROUS SULFATE
     Route: 048
     Dates: start: 20200630
  11. FOLIC ACID [Concomitant]
     Active Substance: FOLIC ACID
     Route: 048
     Dates: start: 20200630
  12. MEMANTINE [Concomitant]
     Active Substance: MEMANTINE
     Route: 048
     Dates: start: 20190325
  13. TRAMADOL [Concomitant]
     Active Substance: TRAMADOL
     Route: 048
     Dates: start: 20180917
  14. ONDANSETRON [Concomitant]
     Active Substance: ONDANSETRON
     Route: 048
     Dates: start: 20180413
  15. PROCHLORPERAZINE [Concomitant]
     Active Substance: PROCHLORPERAZINE
     Route: 048
     Dates: start: 20180219
  16. PROCHLORPERAZINE [Concomitant]
     Active Substance: PROCHLORPERAZINE
     Route: 048
     Dates: start: 20200714
  17. PROCHLORPERAZINE [Concomitant]
     Active Substance: PROCHLORPERAZINE
     Route: 048
     Dates: start: 20201224
  18. PROCHLORPERAZINE [Concomitant]
     Active Substance: PROCHLORPERAZINE
     Route: 048
     Dates: start: 20201207
  19. ESOMEPRAZOLE [Concomitant]
     Active Substance: ESOMEPRAZOLE
     Route: 048
     Dates: start: 20200727
  20. ACETAMINOPHEN [Concomitant]
     Active Substance: ACETAMINOPHEN
     Route: 048
     Dates: start: 20200914
  21. ACETAMINOPHEN [Concomitant]
     Active Substance: ACETAMINOPHEN
     Route: 048
     Dates: start: 20201228, end: 20201228
  22. ACETAMINOPHEN [Concomitant]
     Active Substance: ACETAMINOPHEN
     Route: 048
     Dates: start: 20210215, end: 20210215
  23. TYLENOL [Concomitant]
     Active Substance: ACETAMINOPHEN
     Route: 048
     Dates: start: 20210115, end: 20210116
  24. TYLENOL [Concomitant]
     Active Substance: ACETAMINOPHEN
     Dosage: 2 UNKNOWN
     Route: 048
     Dates: start: 202102
  25. DIPHENHYDRAMINE [Concomitant]
     Active Substance: DIPHENHYDRAMINE
     Route: 042
     Dates: start: 20201228, end: 20201228
  26. DIPHENHYDRAMINE [Concomitant]
     Active Substance: DIPHENHYDRAMINE
     Route: 042
     Dates: start: 20210215, end: 20210215
  27. GUAIFENESIN [Concomitant]
     Active Substance: GUAIFENESIN
     Route: 048
     Dates: start: 20210120, end: 20210308
  28. LEVOFLOXACIN [Concomitant]
     Active Substance: LEVOFLOXACIN
     Route: 048
     Dates: start: 20210120, end: 20210308
  29. VOLTAREN [Concomitant]
     Active Substance: DICLOFENAC SODIUM
     Dosage: 1 UNKNOWN
     Route: 065
     Dates: start: 202102, end: 202102
  30. CETIRIZINE [Concomitant]
     Active Substance: CETIRIZINE HYDROCHLORIDE
     Route: 048
     Dates: start: 20210201, end: 20210201
  31. SULFAMETHOXAZOLE\TRIMETHOPRIM [Concomitant]
     Active Substance: SULFAMETHOXAZOLE\TRIMETHOPRIM
     Route: 048
     Dates: start: 20210125, end: 20210125
  32. BACTRIM [Concomitant]
     Active Substance: SULFAMETHOXAZOLE\TRIMETHOPRIM
     Route: 048
     Dates: start: 20210125, end: 20210420
  33. LISINOPRIL [Concomitant]
     Active Substance: LISINOPRIL
     Route: 048
     Dates: start: 20210308
  34. VANCOMYCIN [Concomitant]
     Active Substance: VANCOMYCIN
     Route: 042
     Dates: start: 20210705, end: 20210712
  35. IOHEXOL [Concomitant]
     Active Substance: IOHEXOL
     Route: 042
     Dates: start: 20210705, end: 20210705
  36. ZOSYN [Concomitant]
     Active Substance: PIPERACILLIN SODIUM\TAZOBACTAM SODIUM
     Route: 042
     Dates: start: 20210705, end: 20210712
  37. SODIUM CHLORIDE [Concomitant]
     Active Substance: SODIUM CHLORIDE
     Route: 042
     Dates: start: 20210705, end: 20210705
  38. OXYCODONE [Concomitant]
     Active Substance: OXYCODONE
     Route: 048
     Dates: start: 20210705, end: 202107
  39. BIOFREEZE (UNITED STATES) [Concomitant]
     Dosage: 2 UNKNOWN
     Route: 048
     Dates: start: 202102
  40. BIOFREEZE (UNITED STATES) [Concomitant]
     Route: 061
     Dates: start: 202102

REACTIONS (2)
  - Pneumonia [Recovered/Resolved]
  - COVID-19 pneumonia [Fatal]

NARRATIVE: CASE EVENT DATE: 20210115
